FAERS Safety Report 10146150 (Version 1)
Quarter: 2014Q2

REPORT INFORMATION
  Report Type: Spontaneous
  Country: NO (occurrence: NO)
  Receive Date: 20140501
  Receipt Date: 20140501
  Transmission Date: 20141212
  Serious: Yes (Other)
  Sender: FDA-Public Use
  Company Number: NO-SA-2014SA052788

PATIENT
  Age: 50 Year
  Sex: Male

DRUGS (7)
  1. METHYLPREDNISOLONE [Suspect]
     Indication: GLOMERULONEPHRITIS
     Dosage: INTRAVENOUS
     Route: 042
  2. PREDNISOLONE [Suspect]
     Indication: GLOMERULONEPHRITIS
     Route: 048
  3. CYCLOPHOSPHAMIDE [Suspect]
     Indication: GLOMERULONEPHRITIS
     Route: 048
  4. CYCLOPHOSPHAMIDE [Suspect]
     Indication: GLOMERULONEPHRITIS
     Route: 065
  5. CEFOTAXIME [Suspect]
     Indication: SEPSIS
     Dosage: INTRAVENOUS
  6. SULFAMETHOXAZOLE/TRIMETHOPRIM [Suspect]
     Indication: INFECTION PROPHYLAXIS
     Dosage: 1 TABLET DAILY
     Route: 065
  7. VALGANCICLOVIR [Suspect]
     Indication: CYTOMEGALOVIRUS INFECTION
     Route: 065

REACTIONS (4)
  - Bone marrow failure [Unknown]
  - Cytomegalovirus infection [Unknown]
  - Leukopenia [Unknown]
  - Clostridium colitis [Unknown]
